FAERS Safety Report 6026883-X (Version None)
Quarter: 2009Q1

REPORT INFORMATION
  Report Type: 
  Country: None (occurrence: None)
  Receive Date: 20090105
  Receipt Date: 20081215
  Transmission Date: 20090719
  Serious: Yes (Disabling)
  Sender: FDA-Public Use
  Company Number: GB-BAYER-200813483BNE

PATIENT
  Age: 41 Year
  Sex: Female
  Weight: 78 kg

DRUGS (1)
  1. MIRENA [Suspect]
     Indication: DRUG USE FOR UNKNOWN INDICATION
     Route: 015
     Dates: start: 20080923, end: 20081106

REACTIONS (4)
  - ARTHRALGIA [None]
  - BODY TEMPERATURE INCREASED [None]
  - ERYTHEMA NODOSUM [None]
  - JOINT SWELLING [None]
